FAERS Safety Report 13886121 (Version 1)
Quarter: 2017Q3

REPORT INFORMATION
  Report Type: Not Available
  Country: CN (occurrence: CN)
  Receive Date: 20170821
  Receipt Date: 20170821
  Transmission Date: 20171127
  Serious: Yes (Other)
  Sender: FDA-Public Use
  Company Number: CN-ANIPHARMA-2017-CN-000056

PATIENT
  Age: 31 Year
  Sex: Female

DRUGS (1)
  1. LITHIUM CARBONATE (NON-SPECIFIC) [Suspect]
     Active Substance: LITHIUM

REACTIONS (1)
  - Drug reaction with eosinophilia and systemic symptoms [Unknown]
